FAERS Safety Report 16224821 (Version 2)
Quarter: 2020Q2

REPORT INFORMATION
  Report Type: Report from Study
  Country: CZ (occurrence: CZ)
  Receive Date: 20190422
  Receipt Date: 20200630
  Transmission Date: 20200713
  Serious: Yes (Death, Other)
  Sender: FDA-Public Use
  Company Number: CZ-INCYTE CORPORATION-2019IN003690

PATIENT

DRUGS (1)
  1. JAKAVI [Suspect]
     Active Substance: RUXOLITINIB
     Indication: PRODUCT USED FOR UNKNOWN INDICATION
     Dosage: UNK
     Route: 065

REACTIONS (3)
  - Myeloproliferative neoplasm [Unknown]
  - Pulmonary fibrosis [Fatal]
  - Therapy non-responder [Unknown]
